FAERS Safety Report 5192519-3 (Version None)
Quarter: 2006Q4

REPORT INFORMATION
  Report Type: 
  Country: None (occurrence: None)
  Receive Date: 20061220
  Receipt Date: 20061205
  Transmission Date: 20070319
  Serious: Yes (Death)
  Sender: FDA-Public Use
  Company Number: POMP-10814

PATIENT
  Age: 7 Month
  Sex: Male
  Weight: 5.8 kg

DRUGS (3)
  1. MYOZYME [Suspect]
     Indication: GLYCOGEN STORAGE DISEASE TYPE II
     Dates: start: 20060715, end: 20060721
  2. ANTIBIOTIC [Concomitant]
  3. ANTIFUNGAL [Concomitant]

REACTIONS (3)
  - DISEASE PROGRESSION [None]
  - RESPIRATORY DISTRESS [None]
  - SEPSIS [None]
